FAERS Safety Report 10071088 (Version 2)
Quarter: 2014Q2

REPORT INFORMATION
  Report Type: Spontaneous
  Country: US (occurrence: CA)
  Receive Date: 20140410
  Receipt Date: 20140410
  Transmission Date: 20141212
  Serious: No
  Sender: FDA-Public Use
  Company Number: CA-FRI-1000066112

PATIENT
  Age: 51 Year
  Sex: Female

DRUGS (3)
  1. SAPHRIS [Suspect]
     Indication: BIPOLAR DISORDER
     Dosage: 10 MG
     Route: 060
  2. LOXAPINE [Concomitant]
  3. ZOPICLONE [Concomitant]

REACTIONS (4)
  - Glossodynia [Recovered/Resolved]
  - Glossitis [Recovered/Resolved]
  - Swollen tongue [Recovered/Resolved]
  - Inappropriate schedule of drug administration [Recovered/Resolved]
